FAERS Safety Report 7200579-0 (Version None)
Quarter: 2010Q4

REPORT INFORMATION
  Report Type: 
  Country: None (occurrence: None)
  Receive Date: 20101228
  Receipt Date: 20101216
  Transmission Date: 20110411
  Serious: Yes (Hospitalization, Other)
  Sender: FDA-Public Use
  Company Number: PHHY2010US85697

PATIENT
  Age: 39 Year
  Sex: Male
  Weight: 65 kg

DRUGS (3)
  1. AMIODARONE [Suspect]
     Indication: VENTRICULAR TACHYCARDIA
     Dosage: 400 MG, QD
  2. SOTALOL HCL [Suspect]
     Indication: VENTRICULAR TACHYCARDIA
     Dosage: 160 MG, BID
  3. PROCAINAMIDE [Suspect]
     Indication: VENTRICULAR TACHYCARDIA
     Dosage: 2 G, TID

REACTIONS (8)
  - ATRIOVENTRICULAR BLOCK [None]
  - DIZZINESS [None]
  - HEART TRANSPLANT [None]
  - MYOCARDIAL DEPRESSION [None]
  - NAUSEA [None]
  - SINUS BRADYCARDIA [None]
  - SKIN DISCOLOURATION [None]
  - VISION BLURRED [None]
